FAERS Safety Report 4746338-X (Version None)
Quarter: 2005Q3

REPORT INFORMATION
  Report Type: 
  Country: None (occurrence: None)
  Receive Date: 20050815
  Receipt Date: 20050811
  Transmission Date: 20060218
  Serious: Yes (Death)
  Sender: FDA-Public Use
  Company Number: A044-002-005707

PATIENT
  Age: 82 Year
  Sex: Male

DRUGS (11)
  1. ARICEPT [Suspect]
     Indication: DEMENTIA ALZHEIMER'S TYPE
     Dosage: 1 IN 1 D, ORAL
     Route: 048
     Dates: end: 20030205
  2. DIGITOXIN TAB [Suspect]
     Indication: CARDIAC FAILURE
     Dosage: ORAL
     Route: 048
     Dates: end: 20030205
  3. FUROSEMIDE [Suspect]
     Dosage: ORAL
     Route: 048
     Dates: end: 20030205
  4. SOTALOL HCL [Suspect]
     Indication: HYPERTENSION
     Dosage: ORAL
     Route: 048
     Dates: end: 20030204
  5. IRBESARTAN [Suspect]
     Dosage: 75 MG, 1 IN 1 D, ORAL
     Route: 048
     Dates: end: 20030204
  6. FRAXIPARINE (HEPARIN-FRACTION, CALCIUM SALT) [Concomitant]
  7. NOCTRAN (NOCTRAN 10) [Concomitant]
  8. ALLOPURINOL [Concomitant]
  9. BUFLOMEDIL (BUFLOMEDIL) [Concomitant]
  10. TARDYERON (FERROUS SULATE) [Concomitant]
  11. DOPAMINE HCL [Concomitant]

REACTIONS (4)
  - BRADYCARDIA [None]
  - CARDIAC FAILURE [None]
  - HYPOTENSION [None]
  - SUDDEN DEATH [None]
